FAERS Safety Report 6446374-1 (Version None)
Quarter: 2009Q4

REPORT INFORMATION
  Report Type: 
  Country: None (occurrence: None)
  Receive Date: 20091116
  Receipt Date: 20091103
  Transmission Date: 20100525
  Serious: Yes (Disabling)
  Sender: FDA-Public Use
  Company Number: 2009-4281

PATIENT
  Age: 44 Year
  Sex: Female
  Weight: 49.9 kg

DRUGS (6)
  1. DYSPORT [Suspect]
     Indication: SKIN COSMETIC PROCEDURE
     Dosage: (50 UNITS, SINGLE CYCLE), PARENTERAL
     Route: 051
     Dates: start: 20091008, end: 20091008
  2. DYSPORT FOR INJECTION [ABOBOTULINUM TOXIN TYPE A] [Suspect]
  3. BOTOX [Concomitant]
  4. VITAMIN B (VITAMIN B) [Concomitant]
  5. CALCIUM (CALCIUM) [Concomitant]
  6. Z-PAK (AZITHROMYCIN) [Concomitant]

REACTIONS (15)
  - BLEPHAROSPASM [None]
  - CHEST PAIN [None]
  - EYE SWELLING [None]
  - EYELID PTOSIS [None]
  - HEADACHE [None]
  - HYPOAESTHESIA [None]
  - MOVEMENT DISORDER [None]
  - MUSCLE TWITCHING [None]
  - NASAL DISORDER [None]
  - ORAL DISORDER [None]
  - PARAESTHESIA [None]
  - RENAL IMPAIRMENT [None]
  - SKIN TIGHTNESS [None]
  - TENSION HEADACHE [None]
  - THROAT TIGHTNESS [None]
